FAERS Safety Report 9931505 (Version 1)
Quarter: 2014Q1

REPORT INFORMATION
  Report Type: Spontaneous
  Country: DE (occurrence: DE)
  Receive Date: 20140228
  Receipt Date: 20140228
  Transmission Date: 20141002
  Serious: Yes (Hospitalization)
  Sender: FDA-Public Use
  Company Number: DE-ROCHE-1356186

PATIENT
  Sex: Female

DRUGS (6)
  1. LUCENTIS [Suspect]
     Indication: AGE-RELATED MACULAR DEGENERATION
     Dosage: LAST DOSE PRIOR TO SAE WAS ON 31/JAN/2013
     Route: 050
     Dates: start: 2008
  2. EUCALYPTUS GLOBULUS [Concomitant]
     Route: 065
     Dates: start: 2007
  3. SODIUM CHLORIDE [Concomitant]
     Route: 065
     Dates: start: 2007
  4. DEKRISTOL [Concomitant]
     Route: 065
     Dates: start: 201205
  5. RAMIPRIL [Concomitant]
     Route: 065
     Dates: start: 20120930
  6. AAS [Concomitant]
     Route: 065
     Dates: start: 1997

REACTIONS (2)
  - Mental disorder [Recovered/Resolved]
  - General physical health deterioration [Recovered/Resolved]
